FAERS Safety Report 19359584 (Version 4)
Quarter: 2023Q4

REPORT INFORMATION
  Report Type: Spontaneous
  Country: FR (occurrence: FR)
  Receive Date: 20210602
  Receipt Date: 20231123
  Transmission Date: 20240109
  Serious: Yes (Life-Threatening, Hospitalization, Other)
  Sender: FDA-Public Use
  Company Number: FR-ACCORD-226976

PATIENT
  Age: 55 Year
  Sex: Male
  Weight: 93 kg

DRUGS (38)
  1. GEMCITABINE [Suspect]
     Active Substance: GEMCITABINE
     Indication: Diffuse large B-cell lymphoma stage III
     Dosage: SINGLE, REGIMEN-01
     Route: 042
     Dates: start: 20210426, end: 20210426
  2. OXALIPLATIN [Suspect]
     Active Substance: OXALIPLATIN
     Indication: Diffuse large B-cell lymphoma stage III
     Dosage: 1Q2W, REGIMEN-01
     Route: 042
     Dates: start: 20210426, end: 20210426
  3. EPCORITAMAB [Suspect]
     Active Substance: EPCORITAMAB
     Indication: Diffuse large B-cell lymphoma stage III
     Dosage: PRIMING DOSE, SINGLE, REGIMEN-01
     Route: 058
     Dates: start: 20210426, end: 20210426
  4. POLARAMINE [Concomitant]
     Active Substance: DEXCHLORPHENIRAMINE MALEATE
     Route: 042
     Dates: start: 20210510, end: 20210510
  5. DOLIPRANE [Concomitant]
     Active Substance: ACETAMINOPHEN
     Route: 048
     Dates: start: 20210510, end: 20210510
  6. Solupred [Concomitant]
     Dates: start: 20210510, end: 20210510
  7. BACTRIM [Concomitant]
     Active Substance: SULFAMETHOXAZOLE\TRIMETHOPRIM
     Dates: start: 2019, end: 20210420
  8. SOLUPRED [Concomitant]
     Route: 048
     Dates: start: 20210426, end: 20210527
  9. AUGMENTIN [Concomitant]
     Active Substance: AMOXICILLIN\CLAVULANATE POTASSIUM
     Dates: start: 20210510, end: 20210510
  10. EUPANTOL [Concomitant]
     Active Substance: PANTOPRAZOLE SODIUM
     Dates: start: 20210510
  11. INSULIN NOS [Concomitant]
     Active Substance: INSULIN NOS
     Dates: start: 20210517, end: 20210518
  12. IRBESARTAN AND HYDROCHLOROTHIAZIDE [Concomitant]
     Active Substance: HYDROCHLOROTHIAZIDE\IRBESARTAN
     Dates: start: 2019
  13. LERCANIDIPINE [Concomitant]
     Active Substance: LERCANIDIPINE
     Dates: start: 2019
  14. LYRICA [Concomitant]
     Active Substance: PREGABALIN
     Dates: start: 20210729
  15. NOVORAPID [Concomitant]
     Active Substance: INSULIN ASPART
     Dates: start: 2019
  16. PLATELETS [Concomitant]
     Active Substance: HUMAN PLATELET, ALLOGENIC
     Dates: start: 20210516, end: 20210516
  17. TADALAFIL [Concomitant]
     Active Substance: TADALAFIL
     Dates: start: 20210208
  18. LEVOFLOXACIN [Concomitant]
     Active Substance: LEVOFLOXACIN
     Dates: start: 20210510, end: 20210510
  19. TOVIAZ [Concomitant]
     Active Substance: FESOTERODINE FUMARATE
     Dates: start: 20210208
  20. CHOLECALCIFEROL [Concomitant]
     Active Substance: CHOLECALCIFEROL
     Dates: start: 2019
  21. VALACYCLOVIR HYDROCHLORIDE [Concomitant]
     Active Substance: VALACYCLOVIR HYDROCHLORIDE
     Dates: start: 2019
  22. CASPOFUNGIN [Concomitant]
     Active Substance: CASPOFUNGIN
     Dates: start: 20210518, end: 20210526
  23. ERTAPENEM [Concomitant]
     Active Substance: ERTAPENEM
     Dates: start: 20210526
  24. POLYETHYLENE GLYCOLS [Concomitant]
     Active Substance: POLYETHYLENE GLYCOLS
     Dates: start: 20210527
  25. INSULIN GLARGINE [Concomitant]
     Active Substance: INSULIN GLARGINE
     Dates: start: 2019
  26. ALLOPURINOL [Concomitant]
     Active Substance: ALLOPURINOL
     Dates: start: 20210510
  27. DOLIPRANE [Concomitant]
     Active Substance: ACETAMINOPHEN
     Dates: start: 20210512
  28. DOLIPRANE [Concomitant]
     Active Substance: ACETAMINOPHEN
     Dates: start: 20210426, end: 20210525
  29. POLARAMINE [Concomitant]
     Active Substance: DEXCHLORPHENIRAMINE MALEATE
     Route: 042
     Dates: start: 20210503
  30. SOLUPRED [Concomitant]
     Route: 048
     Dates: end: 20210506
  31. SOLUPRED [Concomitant]
     Route: 048
     Dates: start: 20210510, end: 20210514
  32. SOLUPRED [Concomitant]
     Route: 048
     Dates: start: 20210525, end: 20210527
  33. EPCORITAMAB [Suspect]
     Active Substance: EPCORITAMAB
     Indication: Diffuse large B-cell lymphoma stage III
     Dosage: SINGLE INTERMEDIATE DOSE, REGIMEN-02
     Route: 058
     Dates: start: 20210503, end: 20210503
  34. EPCORITAMAB [Suspect]
     Active Substance: EPCORITAMAB
     Indication: Diffuse large B-cell lymphoma stage III
     Dosage: FULL DOSE, WEEKLY, REGIMEN-03
     Route: 058
     Dates: start: 20210510, end: 20210510
  35. EPCORITAMAB [Suspect]
     Active Substance: EPCORITAMAB
     Indication: Diffuse large B-cell lymphoma stage III
     Dosage: SINGLE DOSE, WEEKLY, REGIMEN-04
     Route: 058
     Dates: start: 20210525, end: 20210525
  36. OXALIPLATIN [Suspect]
     Active Substance: OXALIPLATIN
     Indication: Diffuse large B-cell lymphoma stage III
     Dosage: SINGLE; REGIMEN-02
     Route: 042
     Dates: start: 20210510, end: 20210510
  37. POLARAMINE [Concomitant]
     Active Substance: DEXCHLORPHENIRAMINE MALEATE
     Route: 048
     Dates: start: 20210426, end: 20210525
  38. GEMCITABINE [Suspect]
     Active Substance: GEMCITABINE
     Indication: Diffuse large B-cell lymphoma stage III
     Dosage: SINGLE, REGIMEN-02
     Route: 042
     Dates: start: 20210510, end: 20210510

REACTIONS (1)
  - Sepsis [Recovered/Resolved]

NARRATIVE: CASE EVENT DATE: 20210511
